FAERS Safety Report 4785071-5 (Version None)
Quarter: 2005Q3

REPORT INFORMATION
  Report Type: 
  Country: None (occurrence: None)
  Receive Date: 20050930
  Receipt Date: 20050921
  Transmission Date: 20060218
  Serious: Yes (Death)
  Sender: FDA-Public Use
  Company Number: US-JNJFOC-20050905129

PATIENT
  Age: 34 Year
  Sex: Male

DRUGS (8)
  1. TRAMADOL [Suspect]
     Indication: SLEEP DISORDER THERAPY
  2. TRAMADOL [Suspect]
     Indication: PAIN
  3. AMITRIPTYLINE HCL [Interacting]
     Indication: SLEEP DISORDER THERAPY
  4. AMITRIPTYLINE HCL [Interacting]
     Indication: PAIN
  5. METAXALONE [Concomitant]
     Indication: SLEEP DISORDER THERAPY
  6. METAXALONE [Concomitant]
     Indication: PAIN
  7. OXYCODONE HCL [Concomitant]
     Indication: SLEEP DISORDER THERAPY
  8. OXYCODONE HCL [Concomitant]
     Indication: PAIN

REACTIONS (5)
  - COMPLETED SUICIDE [None]
  - DRUG INTERACTION [None]
  - DRUG TOXICITY [None]
  - OVERDOSE [None]
  - PULMONARY CONGESTION [None]
